FAERS Safety Report 9395368 (Version 1)
Quarter: 2013Q3

REPORT INFORMATION
  Report Type: Spontaneous
  Country: US (occurrence: US)
  Receive Date: 20130711
  Receipt Date: 20130711
  Transmission Date: 20140515
  Serious: Yes (Other)
  Sender: FDA-Public Use
  Company Number: US-ASTELLAS-2013US005409

PATIENT
  Age: 75 Year
  Sex: Male

DRUGS (3)
  1. MYRBETRIQ [Suspect]
     Indication: BLADDER DISORDER
     Dosage: 25 MG, UID/QD
     Route: 048
     Dates: start: 20130506, end: 201305
  2. METFORMIN [Concomitant]
     Indication: PRODUCT USED FOR UNKNOWN INDICATION
     Dosage: UNK
     Route: 065
  3. ALEVE [Concomitant]
     Indication: PRODUCT USED FOR UNKNOWN INDICATION
     Dosage: UNK
     Route: 065

REACTIONS (2)
  - Pruritus generalised [Recovered/Resolved]
  - Urticaria [Recovered/Resolved]
